FAERS Safety Report 8853175 (Version 1)
Quarter: 2012Q4

REPORT INFORMATION
  Report Type: 
  Country: US (occurrence: US)
  Receive Date: 20121022
  Receipt Date: 20121022
  Transmission Date: 20130627
  Serious: Yes (Death)
  Sender: FDA-Public Use
  Company Number: US-ROCHE-1134715

PATIENT
  Sex: Female

DRUGS (1)
  1. RITUXAN [Suspect]
     Indication: WEGENER^S GRANULOMATOSIS
     Route: 042
     Dates: start: 20100123, end: 20100308

REACTIONS (1)
  - Lung disorder [Fatal]
